FAERS Safety Report 5501407-1 (Version None)
Quarter: 2007Q4

REPORT INFORMATION
  Report Type: 
  Country: None (occurrence: None)
  Receive Date: 20071018
  Receipt Date: 20070308
  Transmission Date: 20080405
  Serious: Yes (Death)
  Sender: FDA-Public Use
  Company Number: 2007020147

PATIENT
  Age: 21 Year
  Sex: Male

DRUGS (1)
  1. NEURONTIN [Suspect]
     Indication: EPILEPSY
     Dates: start: 20000301, end: 20010330

REACTIONS (1)
  - COMPLETED SUICIDE [None]
